FAERS Safety Report 14273008 (Version 2)
Quarter: 2017Q4

REPORT INFORMATION
  Report Type: Report from Study
  Country: US (occurrence: US)
  Receive Date: 20171212
  Receipt Date: 20171228
  Transmission Date: 20180321
  Serious: Yes (Hospitalization, Other)
  Sender: FDA-Public Use
  Company Number: US-BAYER-2017-164282

PATIENT
  Age: 57 Year
  Sex: Male

DRUGS (7)
  1. UPTRAVI [Concomitant]
     Active Substance: SELEXIPAG
     Dosage: 1600 MCG/L, BID
  2. APIXABAN [Concomitant]
     Active Substance: APIXABAN
  3. UPTRAVI [Concomitant]
     Active Substance: SELEXIPAG
     Dosage: 800 MCG/L, BID
  4. ADEMPAS [Suspect]
     Active Substance: RIOCIGUAT
     Indication: PULMONARY ARTERIAL HYPERTENSION
     Dosage: 1 MG, TID
     Route: 048
     Dates: start: 20170718
  5. ADEMPAS [Suspect]
     Active Substance: RIOCIGUAT
     Indication: PULMONARY ARTERIAL HYPERTENSION
     Dosage: 1.5 MG, TID
     Route: 048
  6. ADEMPAS [Suspect]
     Active Substance: RIOCIGUAT
     Indication: PULMONARY ARTERIAL HYPERTENSION
     Dosage: UNK
  7. OPSUMIT [Concomitant]
     Active Substance: MACITENTAN

REACTIONS (6)
  - Surgery [Unknown]
  - Adverse drug reaction [None]
  - Haemoptysis [Unknown]
  - Angioplasty [Unknown]
  - Pulmonary artery therapeutic procedure [Recovering/Resolving]
  - Blood pressure decreased [Unknown]

NARRATIVE: CASE EVENT DATE: 20171016
